FAERS Safety Report 17946808 (Version 1)
Quarter: 2020Q2

REPORT INFORMATION
  Report Type: Spontaneous
  Country: AU (occurrence: AU)
  Receive Date: 20200626
  Receipt Date: 20200626
  Transmission Date: 20200714
  Serious: Yes (Other)
  Sender: FDA-Public Use
  Company Number: AU-ALKEM LABORATORIES LIMITED-AU-ALKEM-2020-02996

PATIENT
  Age: 35 Year
  Sex: Female

DRUGS (2)
  1. OLANZAPINE. [Suspect]
     Active Substance: OLANZAPINE
     Indication: PRODUCT USED FOR UNKNOWN INDICATION
     Dosage: UNK
     Route: 065
  2. CLOZARIL [Suspect]
     Active Substance: CLOZAPINE
     Indication: PRODUCT USED FOR UNKNOWN INDICATION
     Dosage: UNK
     Route: 065

REACTIONS (12)
  - Abdominal neoplasm [Unknown]
  - Product use issue [Unknown]
  - Gastrointestinal carcinoma [Unknown]
  - White blood cell count decreased [Unknown]
  - Post procedural complication [Unknown]
  - Colorectal cancer [Unknown]
  - Obstruction gastric [Unknown]
  - Impaired gastric emptying [Unknown]
  - Malnutrition [Unknown]
  - Pelvic sepsis [Unknown]
  - Neutrophil count decreased [Unknown]
  - Urinary tract infection [Unknown]
